FAERS Safety Report 6607555-7 (Version None)
Quarter: 2010Q1

REPORT INFORMATION
  Report Type: 
  Country: None (occurrence: None)
  Receive Date: 20100301
  Receipt Date: 20100225
  Transmission Date: 20100710
  Serious: Yes (Other)
  Sender: FDA-Public Use
  Company Number: PHEH2009US01249

PATIENT
  Sex: Male

DRUGS (16)
  1. ELIDEL [Suspect]
     Indication: ECZEMA
     Dosage: UNK
     Route: 061
     Dates: start: 20050501
  2. SYNTHROID [Concomitant]
  3. DARVOCET-N 100 [Concomitant]
  4. LYRICA [Concomitant]
  5. ZANAFLEX [Concomitant]
  6. PREVACID [Concomitant]
  7. ENTEX PSE [Concomitant]
  8. MYCOLOG-II CREAM [Concomitant]
  9. ULTRAM [Concomitant]
  10. PHENAZOPYRIDINE HCL TAB [Concomitant]
  11. IBUPROFEN [Concomitant]
  12. RADIATION THERAPY [Concomitant]
     Dosage: UNK
     Dates: end: 20070801
  13. ADRIAMYCIN PFS [Concomitant]
  14. BLEOMYCIN SULFATE [Concomitant]
  15. VINBLASTINE [Concomitant]
  16. DACARBAZINE [Concomitant]

REACTIONS (9)
  - ABDOMINAL HERNIA [None]
  - HODGKIN'S DISEASE [None]
  - INJURY [None]
  - INTERVERTEBRAL DISC DEGENERATION [None]
  - INTERVERTEBRAL DISC PROTRUSION [None]
  - KYPHOSIS [None]
  - PAIN [None]
  - POST PROCEDURAL HYPOTHYROIDISM [None]
  - SCOLIOSIS [None]
